FAERS Safety Report 17482661 (Version 1)
Quarter: 2020Q1

REPORT INFORMATION
  Report Type: Spontaneous
  Country: US (occurrence: US)
  Receive Date: 20200302
  Receipt Date: 20200302
  Transmission Date: 20200409
  Serious: Yes (Hospitalization)
  Sender: FDA-Public Use
  Company Number: US-PFIZER INC-2020088913

PATIENT
  Age: 19 Year
  Sex: Male
  Weight: 61.23 kg

DRUGS (3)
  1. ZOLOFT [Suspect]
     Active Substance: SERTRALINE HYDROCHLORIDE
     Indication: ANXIETY
  2. ZOLOFT [Suspect]
     Active Substance: SERTRALINE HYDROCHLORIDE
     Indication: DEPRESSION
     Dosage: 100 MG, 1X/DAY(100MG 1 TABLET BY MOUTH ONCE A DAY IN THE MORNING)
     Route: 048
     Dates: start: 2019
  3. ZOLOFT [Suspect]
     Active Substance: SERTRALINE HYDROCHLORIDE
     Indication: PSYCHOTIC DISORDER

REACTIONS (4)
  - Borderline personality disorder [Unknown]
  - Chest pain [Not Recovered/Not Resolved]
  - Condition aggravated [Unknown]
  - Psychotic disorder [Unknown]
